FAERS Safety Report 4806631-9 (Version None)
Quarter: 2005Q4

REPORT INFORMATION
  Report Type: 
  Country: None (occurrence: None)
  Receive Date: 20051019
  Receipt Date: 20051005
  Transmission Date: 20060501
  Serious: Yes (Other)
  Sender: FDA-Public Use
  Company Number: USA0507102728

PATIENT
  Age: 31 Year
  Sex: Male
  Weight: 72 kg

DRUGS (6)
  1. HUMATROPE [Suspect]
     Indication: GROWTH HORMONE DEFICIENCY
     Dosage: 0.3 MG DAY
     Dates: start: 20040901
  2. SYNTHROID [Concomitant]
  3. CORTEF (HYDROCORTISONE CIPIONATE) [Concomitant]
  4. FOSAMAX [Concomitant]
  5. VITAMIN D [Concomitant]
  6. CALCIUM GLUCONATE [Concomitant]

REACTIONS (1)
  - HAEMOLYTIC ANAEMIA [None]
